FAERS Safety Report 5956290-7 (Version None)
Quarter: 2008Q4

REPORT INFORMATION
  Report Type: 
  Country: None (occurrence: None)
  Receive Date: 20081118
  Receipt Date: 20081110
  Transmission Date: 20090506
  Serious: Yes (Other)
  Sender: FDA-Public Use
  Company Number: US-ROCHE-595056

PATIENT
  Sex: Female
  Weight: 47.6 kg

DRUGS (3)
  1. BONIVA [Suspect]
     Indication: OSTEOPOROSIS
     Route: 048
     Dates: start: 20070126
  2. EVISTA [Concomitant]
     Dosage: FREQUENCY: DAILY
     Route: 048
  3. SYNTHROID [Concomitant]
     Indication: HYPOTHYROIDISM
     Dosage: FREQUENCY: DAILY
     Route: 048
     Dates: start: 20060405

REACTIONS (1)
  - CEREBROVASCULAR ACCIDENT [None]
